FAERS Safety Report 7335638-5 (Version None)
Quarter: 2011Q1

REPORT INFORMATION
  Report Type: 
  Country: None (occurrence: None)
  Receive Date: 20110307
  Receipt Date: 20101007
  Transmission Date: 20110831
  Serious: Yes (Hospitalization)
  Sender: FDA-Public Use
  Company Number: A0886441A

PATIENT
  Age: 72 Year
  Sex: Male

DRUGS (1)
  1. AVANDIA [Suspect]
     Route: 048
     Dates: start: 20001201, end: 20070501

REACTIONS (5)
  - CORONARY ARTERY BYPASS [None]
  - HAEMORRHAGIC DIATHESIS [None]
  - INCREASED TENDENCY TO BRUISE [None]
  - STENT PLACEMENT [None]
  - ARTERIAL OCCLUSIVE DISEASE [None]
